FAERS Safety Report 20005542 (Version 1)
Quarter: 2021Q4

REPORT INFORMATION
  Report Type: Spontaneous
  Country: US (occurrence: US)
  Receive Date: 20211028
  Receipt Date: 20211028
  Transmission Date: 20220303
  Serious: Yes (Death)
  Sender: FDA-Public Use
  Company Number: None

PATIENT
  Sex: Female
  Weight: 83 kg

DRUGS (4)
  1. DEXAMETHASONE [Suspect]
     Active Substance: DEXAMETHASONE
  2. METHOTREXATE [Concomitant]
     Active Substance: METHOTREXATE
  3. ONCASPAR [Concomitant]
     Active Substance: PEGASPARGASE
  4. VINCRISTINE SULFATE [Concomitant]
     Active Substance: VINCRISTINE SULFATE

REACTIONS (2)
  - Febrile neutropenia [None]
  - Septic shock [None]

NARRATIVE: CASE EVENT DATE: 20210603
